FAERS Safety Report 7537406-8 (Version None)
Quarter: 2011Q2

REPORT INFORMATION
  Report Type: 
  Country: None (occurrence: None)
  Receive Date: 20110603
  Receipt Date: 20110518
  Transmission Date: 20111010
  Serious: Yes (Hospitalization)
  Sender: FDA-Public Use
  Company Number: 2011MA006131

PATIENT
  Age: 4 Year
  Sex: Male

DRUGS (3)
  1. HYDROCORTISONE 2.5% CREAM [Suspect]
     Indication: CHEMOTHERAPY
     Dosage: 24 MG
  2. METHOTREXATE [Concomitant]
  3. CYTARABINE [Concomitant]

REACTIONS (5)
  - ENCEPHALOMALACIA [None]
  - CEREBRAL INFARCTION [None]
  - RASH [None]
  - SUPERIOR SAGITTAL SINUS THROMBOSIS [None]
  - GAIT DISTURBANCE [None]
